FAERS Safety Report 21527575 (Version 3)
Quarter: 2023Q1

REPORT INFORMATION
  Report Type: Spontaneous
  Country: US (occurrence: US)
  Receive Date: 20221031
  Receipt Date: 20230104
  Transmission Date: 20230417
  Serious: No
  Sender: FDA-Public Use
  Company Number: US-BRISTOL-MYERS SQUIBB COMPANY-2022-129130

PATIENT
  Age: 58 Year
  Sex: Male

DRUGS (1)
  1. ABECMA [Suspect]
     Active Substance: IDECABTAGENE VICLEUCEL
     Indication: Plasma cell myeloma
     Dosage: DAILY DOSEANDAMP; REGIMEN:  455,800,000 CAR-T CELLS?ROA: CENTRAL VENOUS CATHETER, RIGHT IJ
     Route: 042
     Dates: start: 20221128, end: 20221128

REACTIONS (1)
  - No adverse event [Unknown]
